FAERS Safety Report 16265265 (Version 1)
Quarter: 2019Q2

REPORT INFORMATION
  Report Type: Report from Study
  Country: None (occurrence: AR)
  Receive Date: 20190502
  Receipt Date: 20190502
  Transmission Date: 20190711
  Serious: Yes (Hospitalization, Other)
  Sender: FDA-Public Use
  Company Number: AR-ABBVIE-19K-007-2764770-00

PATIENT
  Sex: Female

DRUGS (1)
  1. HUMIRA [Suspect]
     Active Substance: ADALIMUMAB
     Indication: PRODUCT USED FOR UNKNOWN INDICATION
     Route: 058
     Dates: start: 20160725

REACTIONS (3)
  - Haemorrhage [Recovered/Resolved]
  - Large intestine polyp [Unknown]
  - Polyp [Unknown]

NARRATIVE: CASE EVENT DATE: 2017
